FAERS Safety Report 25596406 (Version 3)
Quarter: 2025Q4

REPORT INFORMATION
  Report Type: Report from Study
  Country: EU (occurrence: EU)
  Receive Date: 20250723
  Receipt Date: 20251219
  Transmission Date: 20260118
  Serious: Yes (Other)
  Sender: ROCHE
  Company Number: None

PATIENT
  Age: 3 Year
  Sex: Female

DRUGS (23)
  1. RITUXIMAB [Suspect]
     Active Substance: RITUXIMAB
     Indication: Epstein-Barr virus infection reactivation
     Dosage: UNK
  2. MYCOPHENOLATE MOFETIL [Suspect]
     Active Substance: MYCOPHENOLATE MOFETIL
     Indication: Acute graft versus host disease in liver
     Dosage: UNK
  3. MYCOPHENOLATE MOFETIL [Suspect]
     Active Substance: MYCOPHENOLATE MOFETIL
     Indication: Acute graft versus host disease in skin
  4. MELPHALAN [Suspect]
     Active Substance: MELPHALAN
     Indication: Allogenic stem cell transplantation
     Dosage: UNK
  5. MELPHALAN [Suspect]
     Active Substance: MELPHALAN
     Indication: Bone marrow conditioning regimen
  6. CYCLOSPORINE [Suspect]
     Active Substance: CYCLOSPORINE
     Indication: Prophylaxis against graft versus host disease
     Dosage: UNK
  7. THYMOCYTE IMMUNE GLOBULIN NOS [Suspect]
     Active Substance: THYMOCYTE IMMUNE GLOBULIN NOS
     Indication: Allogenic stem cell transplantation
     Dosage: DURING SECOND HSCT
  8. THYMOCYTE IMMUNE GLOBULIN NOS [Suspect]
     Active Substance: THYMOCYTE IMMUNE GLOBULIN NOS
     Indication: Bone marrow conditioning regimen
  9. BUDESONIDE [Suspect]
     Active Substance: BUDESONIDE
     Indication: Acute graft versus host disease in skin
     Dosage: UNK
  10. BUDESONIDE [Suspect]
     Active Substance: BUDESONIDE
     Indication: Acute graft versus host disease in intestine
  11. BUSULFAN [Suspect]
     Active Substance: BUSULFAN
     Indication: Allogenic stem cell transplantation
     Dosage: UNK
  12. BUSULFAN [Suspect]
     Active Substance: BUSULFAN
     Indication: Bone marrow conditioning regimen
  13. FLUDARABINE [Suspect]
     Active Substance: FLUDARABINE PHOSPHATE
     Indication: Allogenic stem cell transplantation
     Dosage: REDUCED INTENSITY CONDITIONING
  14. FLUDARABINE [Suspect]
     Active Substance: FLUDARABINE PHOSPHATE
     Indication: Bone marrow conditioning regimen
  15. CYCLOPHOSPHAMIDE [Suspect]
     Active Substance: CYCLOPHOSPHAMIDE
     Indication: Allogenic stem cell transplantation
     Dosage: UNK
  16. CYCLOPHOSPHAMIDE [Suspect]
     Active Substance: CYCLOPHOSPHAMIDE
     Indication: Bone marrow conditioning regimen
  17. ALEMTUZUMAB [Suspect]
     Active Substance: ALEMTUZUMAB
     Indication: Allogenic stem cell transplantation
  18. ALEMTUZUMAB [Suspect]
     Active Substance: ALEMTUZUMAB
     Indication: Bone marrow conditioning regimen
  19. TACROLIMUS [Suspect]
     Active Substance: TACROLIMUS
     Indication: Acute graft versus host disease in skin
  20. TACROLIMUS [Suspect]
     Active Substance: TACROLIMUS
     Indication: Graft versus host disease in gastrointestinal tract
  21. COTRIMOXAZOLE [Concomitant]
     Active Substance: SULFAMETHOXAZOLE\TRIMETHOPRIM
     Indication: Antifungal prophylaxis
     Dosage: UNK
  22. HIZENTRA [Concomitant]
     Active Substance: HUMAN IMMUNOGLOBULIN G
     Dosage: 0.25 GRAM PER KILOGRAM, Q2WEEKS
  23. PRIVIGEN [Concomitant]
     Active Substance: HUMAN IMMUNOGLOBULIN G

REACTIONS (1)
  - Hypogammaglobulinaemia [Recovered/Resolved]
